FAERS Safety Report 20810771 (Version 7)
Quarter: 2024Q2

REPORT INFORMATION
  Report Type: Spontaneous
  Country: US (occurrence: US)
  Receive Date: 20220510
  Receipt Date: 20240515
  Transmission Date: 20240716
  Serious: Yes (Death, Other)
  Sender: FDA-Public Use
  Company Number: US-PFIZER INC-202200092894

PATIENT
  Age: 68 Year
  Sex: Female
  Weight: 50.79 kg

DRUGS (1)
  1. XELJANZ XR [Suspect]
     Active Substance: TOFACITINIB CITRATE
     Dosage: 11 MG, 1X/DAY
     Dates: start: 2021

REACTIONS (6)
  - Death [Fatal]
  - Thyroid disorder [Recovered/Resolved]
  - Bone pain [Recovered/Resolved]
  - Sensitivity to weather change [Recovered/Resolved]
  - Sneezing [Recovered/Resolved]
  - Photosensitivity reaction [Recovered/Resolved]

NARRATIVE: CASE EVENT DATE: 20240509
